FAERS Safety Report 6603012-2 (Version None)
Quarter: 2010Q1

REPORT INFORMATION
  Report Type: 
  Country: None (occurrence: None)
  Receive Date: 20100226
  Receipt Date: 20100216
  Transmission Date: 20100710
  Serious: Yes (Other)
  Sender: FDA-Public Use
  Company Number: FR-BAYER-201016806GPV

PATIENT
  Age: 17 Year
  Sex: Female

DRUGS (1)
  1. YAZ [Suspect]
     Indication: CONTRACEPTION
     Dates: start: 20090801, end: 20100201

REACTIONS (4)
  - DYSARTHRIA [None]
  - MUSCLE SPASMS [None]
  - PARALYSIS [None]
  - SPEECH DISORDER [None]
